FAERS Safety Report 14552018 (Version 2)
Quarter: 2018Q1

REPORT INFORMATION
  Report Type: Spontaneous
  Country: JP (occurrence: JP)
  Receive Date: 20180220
  Receipt Date: 20180309
  Transmission Date: 20180509
  Serious: Yes (Other)
  Sender: FDA-Public Use
  Company Number: JP-ROCHE-2076108

PATIENT
  Age: 6 Year
  Sex: Male
  Weight: 20 kg

DRUGS (7)
  1. ASVERIN (TIPEPIDINE HIBENZATE) [Concomitant]
     Active Substance: TIPEPIDINE HIBENZATE
     Route: 048
     Dates: start: 20180209, end: 20180213
  2. HOKUNALIN [Concomitant]
     Active Substance: TULOBUTEROL
     Route: 062
     Dates: start: 20180209, end: 20180218
  3. TAMIFLU [Suspect]
     Active Substance: OSELTAMIVIR PHOSPHATE
     Indication: INFLUENZA
     Dosage: DOSAGE IS UNCERTAIN.
     Route: 048
     Dates: start: 20180209, end: 201802
  4. KIPRES [Concomitant]
     Active Substance: MONTELUKAST SODIUM
     Route: 048
     Dates: start: 20180209, end: 20180220
  5. CALONAL [Concomitant]
     Active Substance: ACETAMINOPHEN
     Dosage: IT IS/DAY TWICE.
     Route: 048
     Dates: start: 20180209, end: 20180210
  6. ZESULAN [Concomitant]
     Active Substance: MEQUITAZINE
     Route: 048
     Dates: start: 20180209, end: 20180213
  7. MUCODYNE [Concomitant]
     Active Substance: CARBOCYSTEINE
     Route: 048
     Dates: start: 20180209, end: 20180213

REACTIONS (1)
  - Abnormal behaviour [Recovered/Resolved]

NARRATIVE: CASE EVENT DATE: 20180209
